FAERS Safety Report 4859895-X (Version None)
Quarter: 2005Q4

REPORT INFORMATION
  Report Type: 
  Country: None (occurrence: None)
  Receive Date: 20051215
  Receipt Date: 20051205
  Transmission Date: 20060501
  Serious: Yes (Death)
  Sender: FDA-Public Use
  Company Number: GXKR2005GB00766

PATIENT
  Age: 25 Year
  Sex: Male

DRUGS (4)
  1. PROPRANOLOL [Suspect]
  2. VIAGRA [Suspect]
  3. ANABOLIC STEROIDS (NO INGREDIENTS/SUBSTANCES) [Suspect]
  4. COCAINE (COCAINE) [Suspect]

REACTIONS (3)
  - POLYSUBSTANCE ABUSE [None]
  - SELF-MEDICATION [None]
  - SUDDEN DEATH [None]
